FAERS Safety Report 17510171 (Version 1)
Quarter: 2020Q1

REPORT INFORMATION
  Report Type: Spontaneous
  Country: US (occurrence: US)
  Receive Date: 20200226
  Receipt Date: 20200226
  Transmission Date: 20200409
  Serious: Yes (Hospitalization)
  Sender: FDA-Public Use
  Company Number: None

PATIENT
  Age: 54 Year
  Sex: Female

DRUGS (8)
  1. VITAMIN D [Concomitant]
     Active Substance: VITAMIN D NOS
  2. FENTANYL. [Concomitant]
     Active Substance: FENTANYL
  3. LYRICA [Concomitant]
     Active Substance: PREGABALIN
  4. RELISTOR [Suspect]
     Active Substance: METHYLNALTREXONE BROMIDE
     Indication: CONSTIPATION
     Route: 048
     Dates: start: 20180125
  5. SIMVASTATIN. [Concomitant]
     Active Substance: SIMVASTATIN
  6. ABILIFY [Concomitant]
     Active Substance: ARIPIPRAZOLE
  7. LISINOPRIL AND HYDROCHLOROTHIAZIDE [Concomitant]
     Active Substance: HYDROCHLOROTHIAZIDE\LISINOPRIL
  8. CITALOPRAM [Concomitant]
     Active Substance: CITALOPRAM HYDROBROMIDE

REACTIONS (3)
  - Malaise [None]
  - Therapy cessation [None]
  - Urticaria [None]

NARRATIVE: CASE EVENT DATE: 20200225
